FAERS Safety Report 7301106 (Version 2)
Quarter: 2013Q1

REPORT INFORMATION
  Report Type: Spontaneous
  Country: CN (occurrence: None)
  Receive Date: 20100212
  Receipt Date: 20130207
  Transmission Date: 20140127
  Serious: Yes (Hospitalization, Other)
  Sender: FDA-Public Use
  Company Number: 2010000303

PATIENT
  Age: 61 Year
  Sex: Male
  Weight: 51 kg

DRUGS (5)
  1. ERLOTINIB HCL [Suspect]
     Indication: HEPATIC CANCER
     Dosage: UID/QD?
     Route: 048
     Dates: start: 20091021, end: 20091201
  2. SORAFENIB [Suspect]
     Indication: HEPATIC CANCER
     Dosage: ORAL
     Route: 048
     Dates: start: 20091021, end: 20091201
  3. VITAMIN B (VITAMIN B COMPLEX) [Concomitant]
  4. VIIT C?/00008001/ (ASCORBIC ACID) [Concomitant]
  5. HERBAL PREPARATION (HERBAL PREPARATION) 12/03/2009 TO 12/04/2009 [Concomitant]

REACTIONS (3)
  - Hypokalaemia [None]
  - Fatigue [None]
  - Off label use [None]
